FAERS Safety Report 5019682-9 (Version None)
Quarter: 2006Q2

REPORT INFORMATION
  Report Type: 
  Country: None (occurrence: None)
  Receive Date: 20060601
  Receipt Date: 20060523
  Transmission Date: 20061013
  Serious: Yes (Other)
  Sender: FDA-Public Use
  Company Number: 2005154578

PATIENT
  Age: 49 Year
  Sex: Male
  Weight: 99.7913 kg

DRUGS (11)
  1. GABAPENTIN [Suspect]
     Indication: ARTHRITIS
     Dosage: 300 MG (300 MG, 1 IN 1D)
     Dates: start: 20050101, end: 20051001
  2. NEURONTIN [Suspect]
     Indication: NEUROPATHY PERIPHERAL
  3. NEURONTIN [Suspect]
     Indication: PAIN IN EXTREMITY
  4. NEURONTIN [Suspect]
     Indication: SACRAL PAIN
  5. TYLOX (OXYCODONE HYDROCHLORIDE, PARACETAMOL) [Concomitant]
  6. LORAZEPAM [Concomitant]
  7. CELEXA [Concomitant]
  8. XANAX [Concomitant]
  9. ATIVAN [Concomitant]
  10. SEROQUEL [Concomitant]
  11. MUSCLE RELAXANTS (MUSCLE RELAXANTS) [Concomitant]

REACTIONS (19)
  - ABDOMINAL TENDERNESS [None]
  - AMNESIA [None]
  - APHONIA [None]
  - BUNION [None]
  - CEREBROVASCULAR ACCIDENT [None]
  - CONVULSION [None]
  - DIARRHOEA [None]
  - DISTURBANCE IN ATTENTION [None]
  - DRUG INEFFECTIVE [None]
  - DYSSTASIA [None]
  - HAEMATEMESIS [None]
  - INCOHERENT [None]
  - INSOMNIA [None]
  - MUSCLE SPASMS [None]
  - NAUSEA [None]
  - ORAL INTAKE REDUCED [None]
  - RETCHING [None]
  - TOE DEFORMITY [None]
  - VOMITING [None]
